FAERS Safety Report 12622952 (Version 3)
Quarter: 2016Q4

REPORT INFORMATION
  Report Type: Report from Study
  Country: TR (occurrence: TR)
  Receive Date: 20160804
  Receipt Date: 20161017
  Transmission Date: 20170207
  Serious: Yes (Death, Hospitalization)
  Sender: FDA-Public Use
  Company Number: TR-CELGENEUS-TUR-2016076687

PATIENT
  Age: 62 Year
  Sex: Female

DRUGS (6)
  1. DEXAMETHASONE. [Suspect]
     Active Substance: DEXAMETHASONE
     Indication: PLASMA CELL MYELOMA
     Route: 048
     Dates: start: 20160510
  2. REVLIMID [Suspect]
     Active Substance: LENALIDOMIDE
     Indication: PLASMA CELL MYELOMA
     Dosage: 25 MILLIGRAM
     Route: 048
     Dates: start: 20160510
  3. FENTANIL [Concomitant]
     Active Substance: FENTANYL
     Indication: PROPHYLAXIS
     Route: 065
     Dates: start: 20160530, end: 20160531
  4. PANTOPRAZOLE [Concomitant]
     Active Substance: PANTOPRAZOLE SODIUM
     Indication: PROPHYLAXIS
     Route: 065
     Dates: start: 20160511, end: 20160710
  5. TRAMADOL. [Concomitant]
     Active Substance: TRAMADOL
     Indication: PROPHYLAXIS
     Route: 065
     Dates: start: 20160523, end: 20160530
  6. DEXKETOPROFEN TROMETAMOL [Concomitant]
     Active Substance: DEXKETOPROFEN TROMETAMOL
     Indication: PROPHYLAXIS
     Route: 065
     Dates: start: 20160513, end: 20160710

REACTIONS (4)
  - Altered state of consciousness [Not Recovered/Not Resolved]
  - General physical health deterioration [Not Recovered/Not Resolved]
  - Hypotension [Not Recovered/Not Resolved]
  - Plasma cell myeloma [Fatal]

NARRATIVE: CASE EVENT DATE: 20160711
